FAERS Safety Report 15715821 (Version 1)
Quarter: 2018Q4

REPORT INFORMATION
  Report Type: Spontaneous
  Country: US (occurrence: US)
  Receive Date: 20181212
  Receipt Date: 20181212
  Transmission Date: 20190205
  Serious: Yes (Other)
  Sender: FDA-Public Use
  Company Number: PHEH2018US051942

PATIENT

DRUGS (2)
  1. ROCURONIUM BROMIDE SANDOZ [Suspect]
     Active Substance: ROCURONIUM BROMIDE
     Indication: PRODUCT USED FOR UNKNOWN INDICATION
     Dosage: 100 MG, UNK
     Route: 065
  2. ROCURONIUM BROMIDE SANDOZ [Suspect]
     Active Substance: ROCURONIUM BROMIDE
     Dosage: 50 MG, UNK
     Route: 065

REACTIONS (3)
  - Drug ineffective [Unknown]
  - Muscle twitching [Unknown]
  - Cough [Unknown]
